FAERS Safety Report 25668925 (Version 1)
Quarter: 2025Q3

REPORT INFORMATION
  Report Type: Spontaneous
  Country: US (occurrence: US)
  Receive Date: 20250812
  Receipt Date: 20250812
  Transmission Date: 20251021
  Serious: Yes (Hospitalization)
  Sender: MERCK SHARP & DOHME LLC
  Company Number: US-009507513-2318010

PATIENT
  Age: 70 Year
  Sex: Female
  Weight: 49.4 kg

DRUGS (20)
  1. WINREVAIR [Suspect]
     Active Substance: SOTATERCEPT-CSRK
     Indication: Product used for unknown indication
     Dates: end: 202507
  2. WINREVAIR [Suspect]
     Active Substance: SOTATERCEPT-CSRK
  3. WINREVAIR [Suspect]
     Active Substance: SOTATERCEPT-CSRK
  4. WINREVAIR [Suspect]
     Active Substance: SOTATERCEPT-CSRK
  5. ORENITRAM [Suspect]
     Active Substance: TREPROSTINIL
     Indication: Pulmonary arterial hypertension
     Route: 048
     Dates: start: 20250702
  6. ORENITRAM [Suspect]
     Active Substance: TREPROSTINIL
     Indication: Pulmonary arterial hypertension
     Dosage: 2.75 MG, EVERY 8 HOURS (Q8H), STRENGTH: 2.5 MG AND 0.25 MG
     Route: 048
     Dates: start: 202507, end: 202507
  7. ORENITRAM [Suspect]
     Active Substance: TREPROSTINIL
     Indication: Pulmonary arterial hypertension
     Dosage: 3 MG, Q8H, CURRENT DOSE; STRENGTH: 2.5 MG AND 0.25 MG
     Route: 048
     Dates: start: 202507
  8. MIDODRINE HYDROCHLORIDE [Concomitant]
     Active Substance: MIDODRINE HYDROCHLORIDE
  9. XANAX [Concomitant]
     Active Substance: ALPRAZOLAM
  10. PROTONIX [Concomitant]
     Active Substance: PANTOPRAZOLE SODIUM
  11. IMODIUM [Concomitant]
     Active Substance: LOPERAMIDE HYDROCHLORIDE
  12. TRAZODONE HCL [Concomitant]
     Active Substance: TRAZODONE HYDROCHLORIDE
  13. POTASSIUM CHLORIDE [Concomitant]
     Active Substance: POTASSIUM CHLORIDE
  14. SILDENAFIL CITRATE [Concomitant]
     Active Substance: SILDENAFIL CITRATE
  15. PREDNISONE [Concomitant]
     Active Substance: PREDNISONE
  16. BIFIDOBACTERIUM ANIMALIS LACTIS [Concomitant]
     Active Substance: BIFIDOBACTERIUM ANIMALIS LACTIS
  17. OXYGEN [Concomitant]
     Active Substance: OXYGEN
  18. DIGOXIN [Concomitant]
     Active Substance: DIGOXIN
  19. FUROSEMIDE [Concomitant]
     Active Substance: FUROSEMIDE
  20. ASPIRIN [Concomitant]
     Active Substance: ASPIRIN

REACTIONS (3)
  - Blood loss anaemia [Unknown]
  - Ill-defined disorder [Unknown]
  - Haemorrhage [Unknown]

NARRATIVE: CASE EVENT DATE: 20250724
